FAERS Safety Report 6576827-7 (Version None)
Quarter: 2010Q1

REPORT INFORMATION
  Report Type: 
  Country: None (occurrence: None)
  Receive Date: 20100210
  Receipt Date: 20100201
  Transmission Date: 20100710
  Serious: Yes (Hospitalization, Other)
  Sender: FDA-Public Use
  Company Number: US-ELI_LILLY_AND_COMPANY-US200911000307

PATIENT
  Sex: Female
  Weight: 90.72 kg

DRUGS (25)
  1. CYMBALTA [Suspect]
     Indication: DEPRESSION
     Dosage: 30 MG, DAILY (1/D)
     Dates: start: 20080801, end: 20091031
  2. CYMBALTA [Suspect]
     Dosage: 20 MG, DAILY (1/D)
     Dates: start: 20091101, end: 20091102
  3. CYMBALTA [Suspect]
     Dosage: 20 MG, UNK
     Dates: start: 20091101
  4. EFFIENT [Concomitant]
     Dosage: 10 MG, UNK
     Dates: start: 20091001
  5. PLAVIX [Concomitant]
     Dosage: 1 D/F, UNK
     Dates: start: 20091001, end: 20091026
  6. PLAVIX [Concomitant]
     Dosage: 75 MG, UNK
     Dates: start: 20091124
  7. XANAX [Concomitant]
  8. ASPIRIN [Concomitant]
  9. CRESTOR [Concomitant]
  10. NEBIVOLOL [Concomitant]
     Dates: start: 20091218
  11. PRILOSEC [Concomitant]
  12. THYROID TAB [Concomitant]
  13. PROGESTERONE [Concomitant]
  14. PATANOL [Concomitant]
  15. ATROVENT [Concomitant]
  16. LORATADINE [Concomitant]
  17. SIMVASTATIN [Concomitant]
     Dates: start: 20091004
  18. MULTI-VIT [Concomitant]
  19. CALCIUM CARBONATE [Concomitant]
  20. ESTER-C [Concomitant]
  21. VITAMIN D [Concomitant]
  22. FISH OIL [Concomitant]
  23. FLAXSEED OIL [Concomitant]
  24. EVENING PRIMROSE OIL [Concomitant]
  25. GLUCOSAMINE [Concomitant]

REACTIONS (18)
  - BLOOD PRESSURE INCREASED [None]
  - CATHETERISATION CARDIAC [None]
  - CHEST PAIN [None]
  - CONTUSION [None]
  - DECREASED ACTIVITY [None]
  - DYSPNOEA [None]
  - EPISTAXIS [None]
  - HAEMORRHAGE [None]
  - HAEMORRHOIDAL HAEMORRHAGE [None]
  - INTENTIONAL DRUG MISUSE [None]
  - MALAISE [None]
  - MUSCLE SPASMS [None]
  - PETECHIAE [None]
  - PRURITUS [None]
  - RECTAL HAEMORRHAGE [None]
  - SKIN LESION [None]
  - SOMNOLENCE [None]
  - STENT PLACEMENT [None]
